FAERS Safety Report 12765303 (Version 2)
Quarter: 2017Q1

REPORT INFORMATION
  Report Type: Spontaneous
  Country: US (occurrence: US)
  Receive Date: 20160921
  Receipt Date: 20170223
  Transmission Date: 20170428
  Serious: No
  Sender: FDA-Public Use
  Company Number: US-PFIZER INC-2016441596

PATIENT
  Age: 61 Year
  Sex: Female

DRUGS (12)
  1. CALCIUM CARBONATE. [Concomitant]
     Active Substance: CALCIUM CARBONATE
     Dosage: UNK
  2. AIRBORNE [Concomitant]
     Active Substance: HERBALS\MINERALS\VITAMINS
     Dosage: UNK
  3. FISH OIL [Concomitant]
     Active Substance: FISH OIL
     Dosage: UNK
  4. VITAMIN C [Concomitant]
     Active Substance: ASCORBIC ACID
     Dosage: UNK
  5. ALEVE [Concomitant]
     Active Substance: NAPROXEN SODIUM
     Dosage: UNK
  6. XELJANZ XR [Suspect]
     Active Substance: TOFACITINIB CITRATE
     Indication: RHEUMATOID ARTHRITIS
     Dosage: 11 MG, 1X/DAY
     Route: 048
     Dates: start: 201607
  7. ADVIL [Concomitant]
     Active Substance: IBUPROFEN
     Dosage: UNK
  8. BLACK COHOSH [Concomitant]
     Active Substance: BLACK COHOSH
     Dosage: UNK
  9. CHOLEST OFF NATURE MADE [Concomitant]
     Dosage: UNK
  10. GLUCOSAMINE CHONDROITIN [Concomitant]
     Active Substance: CHONDROITIN SULFATE (BOVINE)\GLUCOSAMINE HYDROCHLORIDE
     Dosage: UNK
  11. VITAMIN D3 [Concomitant]
     Active Substance: CHOLECALCIFEROL
     Dosage: UNK
  12. SUDAFED [Concomitant]
     Active Substance: PSEUDOEPHEDRINE HYDROCHLORIDE
     Dosage: UNK

REACTIONS (6)
  - Sinusitis [Recovered/Resolved]
  - Pain [Not Recovered/Not Resolved]
  - Nasopharyngitis [Unknown]
  - Sinus disorder [Unknown]
  - Eye pain [Recovered/Resolved]
  - Condition aggravated [Not Recovered/Not Resolved]
